FAERS Safety Report 13607052 (Version 3)
Quarter: 2020Q2

REPORT INFORMATION
  Report Type: Report from Study
  Country: TH (occurrence: TH)
  Receive Date: 20170602
  Receipt Date: 20200523
  Transmission Date: 20200713
  Serious: Yes (Life-Threatening, Hospitalization, Other)
  Sender: FDA-Public Use
  Company Number: TH-CIPLA LTD.-2017TH09908

PATIENT

DRUGS (1)
  1. AMPHOTERICIN B LIPOSOMAL [Suspect]
     Active Substance: AMPHOTERICIN B
     Indication: ANTIFUNGAL TREATMENT
     Dosage: 3 MG/KG/DAY, QD (PERIOD 2) (DOSAGE FORM: 50 MG/VIAL))
     Route: 042
     Dates: start: 20170526

REACTIONS (1)
  - Hypokalaemia [Recovered/Resolved with Sequelae]

NARRATIVE: CASE EVENT DATE: 20170528
